FAERS Safety Report 26016484 (Version 2)
Quarter: 2025Q4

REPORT INFORMATION
  Report Type: Report from Study
  Country: JP (occurrence: JP)
  Receive Date: 20251110
  Receipt Date: 20251217
  Transmission Date: 20260117
  Serious: Yes (Other)
  Sender: UCB
  Company Number: JP-UCBJ-CD202514781UCBPHAPROD

PATIENT
  Age: 26 Year

DRUGS (9)
  1. FENFLURAMINE HYDROCHLORIDE [Suspect]
     Active Substance: FENFLURAMINE HYDROCHLORIDE
     Indication: Severe myoclonic epilepsy of infancy
     Dosage: 0.02 MILLIGRAM/KILOGRAM, 2X/DAY (BID)
     Route: 061
  2. FENFLURAMINE HYDROCHLORIDE [Suspect]
     Active Substance: FENFLURAMINE HYDROCHLORIDE
     Dosage: 0.04 MILLIGRAM/KILOGRAM, 2X/DAY (BID)
     Route: 061
  3. FENFLURAMINE HYDROCHLORIDE [Suspect]
     Active Substance: FENFLURAMINE HYDROCHLORIDE
     Dosage: 0.05 MILLIGRAM/KILOGRAM, 2X/DAY (BID)
     Route: 061
  4. FENFLURAMINE HYDROCHLORIDE [Suspect]
     Active Substance: FENFLURAMINE HYDROCHLORIDE
     Dosage: 0.06 MILLIGRAM/KILOGRAM, 2X/DAY (BID)
     Route: 061
  5. FENFLURAMINE HYDROCHLORIDE [Suspect]
     Active Substance: FENFLURAMINE HYDROCHLORIDE
     Dosage: 0.05 MILLIGRAM/KILOGRAM, 2X/DAY (BID)
     Route: 061
  6. FENFLURAMINE HYDROCHLORIDE [Suspect]
     Active Substance: FENFLURAMINE HYDROCHLORIDE
     Dosage: 0.04 MILLIGRAM/KILOGRAM, 2X/DAY (BID)
     Route: 061
  7. DIACOMIT [Concomitant]
     Active Substance: STIRIPENTOL
     Indication: Severe myoclonic epilepsy of infancy
     Dosage: UNK
     Route: 061
  8. VALPROATE SODIUM [Concomitant]
     Active Substance: VALPROATE SODIUM
     Indication: Severe myoclonic epilepsy of infancy
     Dosage: UNK
     Route: 061
  9. TOPIRAMATE [Concomitant]
     Active Substance: TOPIRAMATE
     Indication: Severe myoclonic epilepsy of infancy
     Dosage: UNK
     Route: 061

REACTIONS (6)
  - Epilepsy [Unknown]
  - Tremor [Not Recovered/Not Resolved]
  - Constipation [Recovering/Resolving]
  - Diarrhoea [Recovering/Resolving]
  - Prescribed underdose [Unknown]
  - Off label use [Unknown]
